FAERS Safety Report 6306676-6 (Version None)
Quarter: 2009Q3

REPORT INFORMATION
  Report Type: 
  Country: None (occurrence: None)
  Receive Date: 20090811
  Receipt Date: 20090811
  Transmission Date: 20100115
  Serious: Yes (Hospitalization)
  Sender: FDA-Public Use
  Company Number: None

PATIENT
  Sex: Female
  Weight: 16.3 kg

DRUGS (4)
  1. CYCLOPHOSPHAMIDE [Suspect]
     Dosage: 650 MG
     Dates: end: 20090730
  2. CYTARABINE [Suspect]
     Dosage: 196 MG
     Dates: end: 20090802
  3. MERCAPTOPURINE [Suspect]
     Dosage: 325 MG
     Dates: end: 20090806
  4. METHOTREXATE [Suspect]
     Dosage: 12 MG
     Dates: end: 20090730

REACTIONS (4)
  - COUGH [None]
  - DIARRHOEA [None]
  - HYPOPHAGIA [None]
  - PARAINFLUENZAE VIRUS INFECTION [None]
